FAERS Safety Report 10337972 (Version 2)
Quarter: 2015Q3

REPORT INFORMATION
  Report Type: Spontaneous
  Country: DK (occurrence: DK)
  Receive Date: 20140724
  Receipt Date: 20150831
  Transmission Date: 20151125
  Serious: Yes (Disabling)
  Sender: FDA-Public Use
  Company Number: PHHY2014DK088790

PATIENT
  Age: 63 Year
  Sex: Female

DRUGS (8)
  1. ACLASTA [Suspect]
     Active Substance: ZOLEDRONIC ACID
     Indication: OSTEOPOROSIS
     Dosage: 5 MG, ONCE/SINGLE
     Route: 042
     Dates: start: 20140221
  2. VITAMIN D [Concomitant]
     Active Substance: CHOLECALCIFEROL
     Indication: CHRONIC OBSTRUCTIVE PULMONARY DISEASE
     Route: 065
     Dates: start: 201311
  3. TRAMADOLO ACTAVIS [Concomitant]
     Indication: PAIN
     Route: 065
  4. PANTOLOC//PANTOPRAZOLE SODIUM SESQUIHYDRATE [Concomitant]
     Active Substance: PANTOPRAZOLE SODIUM
     Indication: GASTROOESOPHAGEAL REFLUX DISEASE
     Route: 065
  5. PREDNISOLON [Concomitant]
     Active Substance: PREDNISOLONE
     Indication: PRODUCT USED FOR UNKNOWN INDICATION
     Route: 065
  6. SPIROCORT [Concomitant]
     Active Substance: BUDESONIDE
     Indication: CHRONIC OBSTRUCTIVE PULMONARY DISEASE
     Route: 055
  7. PROPAL [Concomitant]
     Indication: MIGRAINE PROPHYLAXIS
     Route: 065
  8. BETASERC [Concomitant]
     Active Substance: BETAHISTINE
     Indication: MENIERE^S DISEASE
     Route: 065

REACTIONS (6)
  - Temporomandibular joint syndrome [Unknown]
  - Arthritis [Unknown]
  - Gait disturbance [Recovering/Resolving]
  - Myalgia [Recovering/Resolving]
  - Pain in jaw [Recovering/Resolving]
  - Arthralgia [Recovering/Resolving]

NARRATIVE: CASE EVENT DATE: 20140225
